FAERS Safety Report 18109784 (Version 1)
Quarter: 2020Q3

REPORT INFORMATION
  Report Type: Spontaneous
  Country: US (occurrence: US)
  Receive Date: 20200804
  Receipt Date: 20200804
  Transmission Date: 20201103
  Serious: Yes (Death, Other)
  Sender: FDA-Public Use
  Company Number: US-GILEAD-2020-0488565

PATIENT

DRUGS (1)
  1. TRUVADA [Suspect]
     Active Substance: EMTRICITABINE\TENOFOVIR DISOPROXIL FUMARATE
     Indication: HIV INFECTION
     Dosage: UNK
     Route: 048
     Dates: start: 2005, end: 2014

REACTIONS (5)
  - Chronic kidney disease [Unknown]
  - Bone density decreased [Unknown]
  - Death [Fatal]
  - Vitamin D deficiency [Unknown]
  - Renal failure [Unknown]

NARRATIVE: CASE EVENT DATE: 20150707
